FAERS Safety Report 8550321 (Version 2)
Quarter: 2012Q4

REPORT INFORMATION
  Report Type: Report from Study
  Country: GB (occurrence: GB)
  Receive Date: 20120507
  Receipt Date: 20120904
  Transmission Date: 20130627
  Serious: Yes (Hospitalization, Other)
  Sender: FDA-Public Use
  Company Number: GB-BAXTER-2012BAX003046

PATIENT
  Age: 16 Year
  Sex: Male
  Weight: 49 kg

DRUGS (37)
  1. IFOSFAMIDE [Suspect]
     Indication: SARCOMA
     Route: 041
     Dates: start: 20110924
  2. IFOSFAMIDE [Suspect]
     Route: 041
     Dates: start: 20111104
  3. IFOSFAMIDE [Suspect]
     Route: 041
     Dates: start: 20111125
  4. MESNA INJECTION [Suspect]
     Indication: SARCOMA
     Route: 041
     Dates: start: 20111104
  5. BEVACIZUMAB [Suspect]
     Indication: SARCOMA
     Route: 041
     Dates: start: 20110924, end: 20110924
  6. BEVACIZUMAB [Suspect]
     Route: 041
     Dates: start: 20111104
  7. BEVACIZUMAB [Suspect]
     Route: 041
     Dates: start: 20111125
  8. ACTINOMYCIN D [Suspect]
     Indication: SARCOMA
     Route: 040
     Dates: start: 20110924
  9. ACTINOMYCIN D [Suspect]
     Route: 040
     Dates: start: 20111104
  10. ACTINOMYCIN D [Suspect]
     Route: 042
     Dates: start: 20111125
  11. DOXORUBICIN [Suspect]
     Indication: SARCOMA
     Route: 041
     Dates: start: 20110924
  12. DOXORUBICIN [Suspect]
     Route: 041
     Dates: start: 20111104
  13. DOXORUBICIN [Suspect]
     Route: 041
     Dates: start: 20111125
  14. VINCRISTINE [Suspect]
     Indication: SARCOMA
     Route: 041
     Dates: start: 20110924
  15. VINCRISTINE [Suspect]
     Route: 040
     Dates: start: 20111104
  16. VINCRISTINE [Suspect]
     Route: 040
     Dates: start: 20111125
  17. DOCUSATE SODIUM [Concomitant]
     Indication: DRUG USE FOR UNKNOWN INDICATION
     Dates: start: 20111007
  18. HYOSCINE [Concomitant]
     Indication: DRUG USE FOR UNKNOWN INDICATION
     Route: 065
     Dates: start: 20110925
  19. HYOSCINE [Concomitant]
     Route: 065
     Dates: start: 20111104
  20. PARACETAMOL [Concomitant]
     Indication: DRUG USE FOR UNKNOWN INDICATION
     Route: 065
     Dates: start: 20111007
  21. PARACETAMOL [Concomitant]
     Route: 065
     Dates: start: 20111120, end: 20111126
  22. MOVICOL                            /01625101/ [Concomitant]
     Indication: DRUG USE FOR UNKNOWN INDICATION
     Dosage: 2 sachets
     Route: 065
     Dates: start: 20110914
  23. MOVICOL                            /01625101/ [Concomitant]
     Route: 065
     Dates: start: 20111121, end: 20111123
  24. MOVICOL                            /01625101/ [Concomitant]
     Dosage: 2 sachets
     Route: 065
     Dates: start: 20111121
  25. MELATONIN [Concomitant]
     Indication: DRUG USE FOR UNKNOWN INDICATION
     Route: 065
     Dates: start: 20110916
  26. MST                                /00036302/ [Concomitant]
     Indication: DRUG USE FOR UNKNOWN INDICATION
     Route: 065
     Dates: start: 20110916
  27. MST                                /00036302/ [Concomitant]
     Route: 065
     Dates: start: 20110921
  28. ONDANSETRON [Concomitant]
     Indication: DRUG USE FOR UNKNOWN INDICATION
     Route: 065
     Dates: start: 20110928
  29. ONDANSETRON [Concomitant]
     Route: 065
     Dates: start: 20111124, end: 20111128
  30. ONDANSETRON [Concomitant]
     Route: 065
     Dates: start: 20111104
  31. METOCLOPRAMIDE [Concomitant]
     Indication: DRUG USE FOR UNKNOWN INDICATION
     Route: 065
     Dates: start: 20110924
  32. METOCLOPRAMIDE [Concomitant]
     Route: 065
     Dates: start: 20111120, end: 20111128
  33. CAVILON [Concomitant]
     Indication: DRUG USE FOR UNKNOWN INDICATION
     Route: 061
     Dates: start: 20111003
  34. OMEPRAZOLE [Concomitant]
     Indication: DRUG USE FOR UNKNOWN INDICATION
     Route: 065
     Dates: start: 20111105
  35. COTRIMOXAZOLE [Concomitant]
     Indication: DRUG USE FOR UNKNOWN INDICATION
     Route: 065
     Dates: start: 20110924
  36. PROCAL [Concomitant]
     Indication: DRUG USE FOR UNKNOWN INDICATION
     Dosage: 90 mis
     Route: 065
     Dates: start: 2011
  37. CHLORPHENIRAMINE MALEATE [Concomitant]
     Indication: DRUG USE FOR UNKNOWN INDICATION
     Route: 065
     Dates: start: 20111121

REACTIONS (3)
  - Febrile neutropenia [Recovered/Resolved]
  - Ingrowing nail [Recovered/Resolved]
  - Epistaxis [Recovered/Resolved]
